FAERS Safety Report 6292095-8 (Version None)
Quarter: 2009Q3

REPORT INFORMATION
  Report Type: 
  Country: None (occurrence: None)
  Receive Date: 20090731
  Receipt Date: 20070614
  Transmission Date: 20100115
  Serious: Yes (Other)
  Sender: FDA-Public Use
  Company Number: US-ASTRAZENECA-2006UW08047

PATIENT
  Age: 16537 Day
  Sex: Female
  Weight: 102.5 kg

DRUGS (19)
  1. SEROQUEL [Suspect]
     Indication: BIPOLAR DISORDER
     Route: 048
     Dates: start: 19980501, end: 20060301
  2. SEROQUEL [Suspect]
     Dosage: 100 MG DAILY AND 200 MG AT EVENING DAILY
     Route: 048
     Dates: start: 19990121
  3. SEROQUEL [Suspect]
     Dosage: 100 MG IN MORNING, 300 MG AT NIGHT
     Route: 048
     Dates: start: 19990210
  4. SEROQUEL [Suspect]
     Dosage: 50 MG AT EVENING, 300 MG AT NIGHT
     Route: 048
     Dates: start: 20050411
  5. GEODON [Concomitant]
     Dates: start: 20060301
  6. ZYPREXA [Concomitant]
     Dates: start: 19960101, end: 19980101
  7. ADVAIR HFA [Concomitant]
     Dates: start: 20021004
  8. CELEXA [Concomitant]
     Dates: start: 19990121
  9. DEPAKOTE [Concomitant]
     Route: 048
     Dates: start: 20021004
  10. FLOVENT [Concomitant]
     Dates: start: 20011012
  11. HUMIBID LA [Concomitant]
     Dosage: 600 MG, TWO TABLET TWO TIMES A DAY
     Dates: start: 19990123
  12. IBUPROFEN [Concomitant]
     Dates: start: 20030607
  13. LISINOPRIL [Concomitant]
     Dates: start: 20030607
  14. LORAZEPAM [Concomitant]
     Dates: start: 20011025
  15. LOVASTATIN [Concomitant]
     Dates: start: 20021004
  16. NEURONTIN [Concomitant]
     Dosage: 100MG -300 MG
     Dates: start: 20011025
  17. PREDNISONE [Concomitant]
     Dates: start: 19990123
  18. TRAZODONE HCL [Concomitant]
     Dates: start: 20030607
  19. ZOCOR [Concomitant]
     Dates: start: 20011115

REACTIONS (6)
  - DIABETES MELLITUS [None]
  - DIABETIC NEUROPATHY [None]
  - HYPERCHOLESTEROLAEMIA [None]
  - HYPERLIPIDAEMIA [None]
  - NEUROPATHY PERIPHERAL [None]
  - TYPE 2 DIABETES MELLITUS [None]
